FAERS Safety Report 6852538-5 (Version None)
Quarter: 2010Q3

REPORT INFORMATION
  Report Type: 
  Country: None (occurrence: None)
  Receive Date: 20100717
  Receipt Date: 20071121
  Transmission Date: 20110219
  Serious: Yes (Other)
  Sender: FDA-Public Use
  Company Number: US-PFIZER INC-2007099139

PATIENT
  Sex: Female
  Weight: 52.2 kg

DRUGS (4)
  1. CHANTIX [Suspect]
     Indication: SMOKING CESSATION THERAPY
     Dates: start: 20070101
  2. LIPITOR [Concomitant]
  3. ACETYLSALICYLIC ACID [Concomitant]
  4. XANAX [Concomitant]
     Indication: ANXIETY
     Dosage: AS NEEDED

REACTIONS (1)
  - DEPRESSION [None]
